FAERS Safety Report 4457067-4 (Version None)
Quarter: 2004Q3

REPORT INFORMATION
  Report Type: 
  Country: None (occurrence: None)
  Receive Date: 20040921
  Receipt Date: 20040909
  Transmission Date: 20050211
  Serious: Yes (Other)
  Sender: FDA-Public Use
  Company Number: 2004-118695-NL

PATIENT
  Age: 73 Year
  Sex: Female

DRUGS (1)
  1. ZEMURON [Suspect]
     Indication: NEUROMUSCULAR BLOCKADE
     Dosage: DF INTRAVENOUS (NOS)
     Route: 042
     Dates: start: 20040716

REACTIONS (2)
  - ANAESTHETIC COMPLICATION NEUROLOGICAL [None]
  - DELAYED RECOVERY FROM ANAESTHESIA [None]
